FAERS Safety Report 5154091-3 (Version None)
Quarter: 2006Q4

REPORT INFORMATION
  Report Type: 
  Country: None (occurrence: None)
  Receive Date: 20061116
  Receipt Date: 20061116
  Transmission Date: 20070319
  Serious: Yes (Hospitalization)
  Sender: FDA-Public Use
  Company Number: None

PATIENT
  Age: 25 Year
  Sex: Male
  Weight: 89.8 kg

DRUGS (20)
  1. COMPAZINE [Suspect]
  2. METOCLOPRAMIDE INJ [Concomitant]
  3. THIAMINE [Concomitant]
  4. MULTIVITAMINS/ZINC (CENTRUM) [Concomitant]
  5. ETODOLAC [Concomitant]
  6. LISINOPRIL [Concomitant]
  7. ENOXAPARIN SODIUM [Concomitant]
  8. CITALOPRAM HYDROBROMIDE [Concomitant]
  9. ASPIRIN [Concomitant]
  10. SIMVASTATIN [Concomitant]
  11. MAGNESIUM HYDROXIDE SUSP [Concomitant]
  12. DM 10/GUAIF [Concomitant]
  13. DICYCKIMINE [Concomitant]
  14. ALOH/MGOH/SIMTH XTRA STRENGTH SUSP [Concomitant]
  15. ACETAMINOPHEN [Concomitant]
  16. WARFARIN SODIUM [Concomitant]
  17. OMEPRAZOLE [Concomitant]
  18. DIPHENHYDRAMINE HCL [Concomitant]
  19. TRAZODONE HCL [Concomitant]
  20. NICOTINE POLACRILEX GUM [Concomitant]

REACTIONS (1)
  - SWOLLEN TONGUE [None]
